FAERS Safety Report 6819114-1 (Version None)
Quarter: 2010Q2

REPORT INFORMATION
  Report Type: 
  Country: None (occurrence: None)
  Receive Date: 20100630
  Receipt Date: 20100621
  Transmission Date: 20101027
  Serious: Yes (Hospitalization)
  Sender: FDA-Public Use
  Company Number: 7008693

PATIENT
  Age: 45 Year
  Sex: Female

DRUGS (2)
  1. NOVANTRONE [Suspect]
     Indication: DRUG USE FOR UNKNOWN INDICATION
     Dates: end: 20100301
  2. REBIF [Suspect]
     Indication: DRUG USE FOR UNKNOWN INDICATION
     Dosage: 8.8 MCG
     Dates: start: 20100401, end: 20100501

REACTIONS (2)
  - CARDIAC FAILURE CONGESTIVE [None]
  - CARDIOMYOPATHY [None]
